FAERS Safety Report 24579966 (Version 1)
Quarter: 2024Q4

REPORT INFORMATION
  Report Type: Spontaneous
  Country: US (occurrence: None)
  Receive Date: 20241104
  Receipt Date: 20241104
  Transmission Date: 20250114
  Serious: Yes (unspecified)
  Sender: Public
  Company Number: None

PATIENT
  Age: 47 Year
  Sex: Male
  Weight: 98 kg

DRUGS (1)
  1. CEFTRIAXONE SODIUM [Suspect]
     Active Substance: CEFTRIAXONE SODIUM
     Indication: Urinary tract infection
     Dosage: 2000.0 MG ONCE INTRAVENOUS?
     Route: 042
     Dates: start: 20240822, end: 20240822

REACTIONS (5)
  - Angina pectoris [None]
  - Anxiety [None]
  - Hyperhidrosis [None]
  - Palpitations [None]
  - Vomiting [None]

NARRATIVE: CASE EVENT DATE: 20240822
